FAERS Safety Report 7021603-4 (Version None)
Quarter: 2010Q3

REPORT INFORMATION
  Report Type: 
  Country: None (occurrence: None)
  Receive Date: 20100928
  Receipt Date: 20100917
  Transmission Date: 20110219
  Serious: Yes (Other)
  Sender: FDA-Public Use
  Company Number: 2010AP002028

PATIENT
  Age: 23 Year
  Sex: Female

DRUGS (1)
  1. TERBINAFINE HYDROCHLORIDE [Suspect]
     Dosage: 250 MG; PO
     Route: 048
     Dates: start: 20100813, end: 20100907

REACTIONS (4)
  - EYE SWELLING [None]
  - HYPOKINESIA [None]
  - JOINT SWELLING [None]
  - URTICARIA [None]
